FAERS Safety Report 6067226-5 (Version None)
Quarter: 2009Q1

REPORT INFORMATION
  Report Type: 
  Country: None (occurrence: None)
  Receive Date: 20090204
  Receipt Date: 20090204
  Transmission Date: 20090719
  Serious: Yes (Hospitalization)
  Sender: FDA-Public Use
  Company Number: None

PATIENT
  Sex: Female
  Weight: 66 kg

DRUGS (2)
  1. CISPLATIN [Suspect]
     Dosage: 122 MG
     Dates: end: 20090113
  2. NAVELBINE [Suspect]
     Dosage: 80 MG
     Dates: end: 20090120

REACTIONS (4)
  - ASTHENIA [None]
  - CONFUSIONAL STATE [None]
  - FALL [None]
  - URINARY TRACT INFECTION [None]
